FAERS Safety Report 18216033 (Version 3)
Quarter: 2020Q3

REPORT INFORMATION
  Report Type: Spontaneous
  Country: US (occurrence: US)
  Receive Date: 20200901
  Receipt Date: 20200914
  Transmission Date: 20201103
  Serious: No
  Sender: FDA-Public Use
  Company Number: US-SA-2020SA227262

PATIENT

DRUGS (1)
  1. CABLIVI [Suspect]
     Active Substance: CAPLACIZUMAB-YHDP
     Indication: THROMBOTIC MICROANGIOPATHY
     Dosage: 11 MG, QD
     Route: 058
     Dates: start: 20200825, end: 20200831

REACTIONS (5)
  - Laboratory test abnormal [Unknown]
  - Injection site haemorrhage [Unknown]
  - Injection site pain [Unknown]
  - Muscle spasms [Unknown]
  - Premenstrual pain [Unknown]

NARRATIVE: CASE EVENT DATE: 20200831
